FAERS Safety Report 6694052-6 (Version None)
Quarter: 2010Q2

REPORT INFORMATION
  Report Type: 
  Country: None (occurrence: None)
  Receive Date: 20100423
  Receipt Date: 20100412
  Transmission Date: 20101027
  Serious: Yes (Hospitalization)
  Sender: FDA-Public Use
  Company Number: IT-BAYER-201022412GPV

PATIENT
  Age: 62 Year
  Sex: Male
  Weight: 82 kg

DRUGS (23)
  1. SORAFENIB [Suspect]
     Indication: DRUG USE FOR UNKNOWN INDICATION
     Dosage: TOTAL DAILY DOSE: 800 MG
     Route: 048
     Dates: start: 20080829, end: 20080918
  2. SORAFENIB [Suspect]
     Dosage: TOTAL DAILY DOSE: 400 MG
     Route: 048
     Dates: start: 20080919, end: 20081001
  3. SORAFENIB [Suspect]
     Dosage: TOTAL DAILY DOSE: 800 MG
     Route: 048
     Dates: start: 20081002, end: 20081021
  4. SORAFENIB [Suspect]
     Dosage: TOTAL DAILY DOSE: 400 MG
     Route: 048
     Dates: start: 20081029, end: 20081126
  5. GEMCITABINE HCL [Suspect]
     Indication: DRUG USE FOR UNKNOWN INDICATION
     Dosage: UNIT DOSE: 1250 MG/M2
     Route: 042
     Dates: start: 20080905, end: 20080905
  6. GEMCITABINE HCL [Suspect]
     Dosage: UNIT DOSE: 1250 MG/M2
     Route: 042
     Dates: start: 20080926, end: 20080926
  7. GEMCITABINE HCL [Suspect]
     Dosage: UNIT DOSE: 1250 MG/M2
     Route: 042
     Dates: start: 20081211, end: 20081211
  8. GEMCITABINE HCL [Suspect]
     Dosage: UNIT DOSE: 1250 MG/M2
     Route: 042
     Dates: start: 20081105, end: 20081105
  9. GEMCITABINE HCL [Suspect]
     Dosage: UNIT DOSE: 1250 MG/M2
     Route: 042
     Dates: start: 20081113, end: 20081113
  10. GEMCITABINE HCL [Suspect]
     Dosage: UNIT DOSE: 1250 MG/M2
     Route: 042
     Dates: start: 20080829, end: 20080829
  11. GEMCITABINE HCL [Suspect]
     Dosage: UNIT DOSE: 1250 MG/M2
     Route: 042
     Dates: start: 20081014, end: 20081014
  12. GEMCITABINE HCL [Suspect]
     Dosage: UNIT DOSE: 1250 MG/M2
     Route: 042
     Dates: start: 20080919, end: 20080919
  13. CISPLATIN [Suspect]
     Indication: DRUG USE FOR UNKNOWN INDICATION
     Dosage: UNIT DOSE: 75 MG/M2
     Route: 042
     Dates: start: 20080829, end: 20080829
  14. CISPLATIN [Suspect]
     Dosage: UNIT DOSE: 75 MG/M2
     Route: 042
     Dates: start: 20080919, end: 20080919
  15. CISPLATIN [Suspect]
     Dosage: UNIT DOSE: 75 MG/M2
     Route: 042
     Dates: start: 20081105, end: 20081105
  16. CISPLATIN [Suspect]
     Dosage: UNIT DOSE: 75 MG/M2
     Route: 042
     Dates: start: 20081211, end: 20081211
  17. CISPLATIN [Suspect]
     Dosage: UNIT DOSE: 75 MG/M2
     Route: 042
     Dates: start: 20081014, end: 20081014
  18. SPIRIVA [Concomitant]
     Indication: COUGH
     Dates: start: 20080828
  19. CLENIL COMPOSITUM [Concomitant]
     Indication: COUGH
     Dates: start: 20080828
  20. MEDROL [Concomitant]
     Indication: COUGH
     Dates: start: 20080828
  21. DIFLUCAN [Concomitant]
     Indication: MUCOSAL INFLAMMATION
     Dates: start: 20080928, end: 20081014
  22. LANSOX [Concomitant]
     Indication: PROPHYLAXIS
     Dates: start: 20081023
  23. COLIFOAM [Concomitant]
     Indication: HAEMORRHOIDS
     Dates: start: 20080926, end: 20081013

REACTIONS (1)
  - PULMONARY EMBOLISM [None]
